FAERS Safety Report 4852211-9 (Version None)
Quarter: 2005Q4

REPORT INFORMATION
  Report Type: 
  Country: None (occurrence: None)
  Receive Date: 20051213
  Receipt Date: 20051207
  Transmission Date: 20060501
  Serious: Yes (Other)
  Sender: FDA-Public Use
  Company Number: CH-GLAXOSMITHKLINE-B0403200A

PATIENT
  Age: 37 Year
  Sex: Male

DRUGS (3)
  1. SERETIDE [Suspect]
     Indication: ASTHMA
     Dosage: 2ACTU PER DAY
     Route: 045
     Dates: start: 19980101
  2. SINGULAIR [Concomitant]
     Indication: ASTHMA
     Route: 048
  3. PULMICORT [Concomitant]

REACTIONS (1)
  - OSTEONECROSIS [None]
